FAERS Safety Report 6481397-8 (Version None)
Quarter: 2009Q4

REPORT INFORMATION
  Report Type: 
  Country: None (occurrence: None)
  Receive Date: 20091208
  Receipt Date: 20090313
  Transmission Date: 20100525
  Serious: No
  Sender: FDA-Public Use
  Company Number: US-AMGEN-KDL338401

PATIENT
  Sex: Female

DRUGS (2)
  1. ENBREL [Suspect]
     Indication: RHEUMATOID ARTHRITIS
     Dates: start: 19990101
  2. SIMVASTATIN [Concomitant]
     Dates: start: 20080101

REACTIONS (3)
  - HYPERSENSITIVITY [None]
  - RASH PAPULAR [None]
  - RASH PRURITIC [None]
